FAERS Safety Report 17509526 (Version 1)
Quarter: 2020Q1

REPORT INFORMATION
  Report Type: Spontaneous
  Country: NL (occurrence: BE)
  Receive Date: 20200306
  Receipt Date: 20200306
  Transmission Date: 20200409
  Serious: Yes (Other)
  Sender: FDA-Public Use
  Company Number: BE-FRESENIUS KABI-FK202002086

PATIENT
  Age: 62 Year
  Sex: Male

DRUGS (3)
  1. PACLITAXEL (MANUFACTURER UNKNOWN) [Suspect]
     Active Substance: PACLITAXEL
     Indication: SPINDLE CELL SARCOMA
     Dosage: 4 COURSES
     Route: 065
  2. PEMBROLIZUMAB. [Suspect]
     Active Substance: PEMBROLIZUMAB
     Dosage: MONOTHERAPY FROM 5TH CYCLE
     Route: 065
  3. PEMBROLIZUMAB. [Suspect]
     Active Substance: PEMBROLIZUMAB
     Indication: SPINDLE CELL SARCOMA
     Dosage: 4 COURSES IN COMBINATION
     Route: 065

REACTIONS (2)
  - Product use in unapproved indication [Unknown]
  - Neuropathy peripheral [Unknown]
